FAERS Safety Report 7292285-1 (Version None)
Quarter: 2011Q1

REPORT INFORMATION
  Report Type: 
  Country: None (occurrence: None)
  Receive Date: 20110215
  Receipt Date: 20110203
  Transmission Date: 20110831
  Serious: Yes (Other)
  Sender: FDA-Public Use
  Company Number: CA-BAYER-2011-010922

PATIENT
  Sex: Female

DRUGS (2)
  1. CLIMARA 50 [Suspect]
     Indication: FLUSHING
     Dosage: UNK
     Dates: start: 20100901
  2. CIPRALEX [Concomitant]
     Indication: DEPRESSION

REACTIONS (1)
  - TRANSIENT GLOBAL AMNESIA [None]
